FAERS Safety Report 8030276-3 (Version None)
Quarter: 2012Q1

REPORT INFORMATION
  Report Type: 
  Country: None (occurrence: None)
  Receive Date: 20120109
  Receipt Date: 20120105
  Transmission Date: 20120608
  Serious: Yes (Other)
  Sender: FDA-Public Use
  Company Number: PHHY2012CA001260

PATIENT
  Sex: Male

DRUGS (1)
  1. AFINITOR [Suspect]
     Indication: NEUROENDOCRINE CARCINOMA
     Dosage: 10 MG, DAILY
     Route: 048
     Dates: start: 20111201, end: 20111227

REACTIONS (4)
  - GASTRIC DILATATION [None]
  - DIZZINESS [None]
  - FALL [None]
  - ASTHENIA [None]
